FAERS Safety Report 7006743-8 (Version None)
Quarter: 2010Q3

REPORT INFORMATION
  Report Type: 
  Country: None (occurrence: None)
  Receive Date: 20100922
  Receipt Date: 20100914
  Transmission Date: 20110219
  Serious: No
  Sender: FDA-Public Use
  Company Number: US-BIOGENIDEC-2006BI005503

PATIENT
  Sex: Male
  Weight: 90 kg

DRUGS (2)
  1. TYSABRI [Suspect]
     Indication: MULTIPLE SCLEROSIS
     Route: 042
     Dates: start: 20050210, end: 20050210
  2. TYSABRI [Suspect]
     Route: 042
     Dates: start: 20061121

REACTIONS (4)
  - ASTHENIA [None]
  - BALANCE DISORDER [None]
  - GAIT DISTURBANCE [None]
  - RASH MACULAR [None]
